FAERS Safety Report 24144089 (Version 2)
Quarter: 2025Q2

REPORT INFORMATION
  Report Type: Report from Study
  Country: IN (occurrence: IN)
  Receive Date: 20240727
  Receipt Date: 20250409
  Transmission Date: 20250716
  Serious: Yes (Other)
  Sender: NOVARTIS
  Company Number: IN-002147023-NVSC2021IN123594

PATIENT
  Age: 62 Year
  Sex: Female

DRUGS (3)
  1. TASIGNA [Suspect]
     Active Substance: NILOTINIB
     Indication: Chronic myeloid leukaemia
     Dosage: 400 MG, BID
     Route: 048
     Dates: start: 20180925, end: 20210515
  2. TASIGNA [Suspect]
     Active Substance: NILOTINIB
     Dosage: 200 MG, BID
     Route: 048
  3. TASIGNA [Suspect]
     Active Substance: NILOTINIB
     Dosage: 400 MG, BID
     Route: 048

REACTIONS (5)
  - Thrombocytopenia [Not Recovered/Not Resolved]
  - Off label use [Unknown]
  - Cough [Unknown]
  - Rhonchi [Unknown]
  - Xanthelasma [Unknown]

NARRATIVE: CASE EVENT DATE: 20210515
